FAERS Safety Report 24959513 (Version 2)
Quarter: 2025Q1

REPORT INFORMATION
  Report Type: Spontaneous
  Country: CZ (occurrence: CZ)
  Receive Date: 20250212
  Receipt Date: 20250327
  Transmission Date: 20250409
  Serious: Yes (Other)
  Sender: ACCORD
  Company Number: None

PATIENT
  Sex: Female

DRUGS (4)
  1. CARBOPLATIN [Suspect]
     Active Substance: CARBOPLATIN
     Indication: Product used for unknown indication
     Dosage: 1X WEEK, 12 CYCLES
     Dates: start: 20240905, end: 20241122
  2. PACLITAXEL [Suspect]
     Active Substance: PACLITAXEL
     Indication: Product used for unknown indication
     Dosage: 1X WEEK, 12 CYCLES
     Dates: start: 20240905, end: 20241122
  3. PEMBROLIZUMAB [Suspect]
     Active Substance: PEMBROLIZUMAB
     Indication: Product used for unknown indication
     Dosage: 1X 3 WEEK, STRENGTH: 200 MG
     Dates: start: 20240905
  4. GOSERELIN [Concomitant]
     Active Substance: GOSERELIN

REACTIONS (18)
  - Migraine [Not Recovered/Not Resolved]
  - Decreased appetite [Not Recovered/Not Resolved]
  - Abdominal pain lower [Not Recovered/Not Resolved]
  - Palpitations [Not Recovered/Not Resolved]
  - Anxiety [Not Recovered/Not Resolved]
  - Dry eye [Not Recovered/Not Resolved]
  - Visual impairment [Not Recovered/Not Resolved]
  - Epistaxis [Not Recovered/Not Resolved]
  - Rectal haemorrhage [Not Recovered/Not Resolved]
  - Insomnia [Not Recovered/Not Resolved]
  - Full blood count abnormal [Not Recovered/Not Resolved]
  - Dysgeusia [Not Recovered/Not Resolved]
  - Urticaria [Recovered/Resolved]
  - Alopecia [Not Recovered/Not Resolved]
  - Hot flush [Not Recovered/Not Resolved]
  - Hyperhidrosis [Not Recovered/Not Resolved]
  - Hair disorder [Not Recovered/Not Resolved]
  - Fatigue [Not Recovered/Not Resolved]
